FAERS Safety Report 10961011 (Version 1)
Quarter: 2015Q1

REPORT INFORMATION
  Report Type: Spontaneous
  Country: US (occurrence: None)
  Receive Date: 20150326
  Receipt Date: 20150326
  Transmission Date: 20150721
  Serious: Yes (Hospitalization, Other)
  Sender: FDA-Public Use
  Company Number: None

PATIENT
  Age: 73 Year
  Sex: Female
  Weight: 65.77 kg

DRUGS (7)
  1. TYLENOL [Concomitant]
     Active Substance: ACETAMINOPHEN
  2. ASA [Concomitant]
     Active Substance: ASPIRIN
  3. LISINOPRIL. [Concomitant]
     Active Substance: LISINOPRIL
  4. FEXOFENADINE [Concomitant]
     Active Substance: FEXOFENADINE\FEXOFENADINE HYDROCHLORIDE
  5. MULTIVIT WITH IRON [Concomitant]
  6. TRAMADOL 50 [Suspect]
     Active Substance: TRAMADOL
     Indication: PAIN
     Dosage: 1-2
     Route: 048
     Dates: start: 20150216, end: 20150220
  7. VIT B12 SHOTS [Concomitant]

REACTIONS (12)
  - Wheezing [None]
  - Pollakiuria [None]
  - Nausea [None]
  - Memory impairment [None]
  - Micturition urgency [None]
  - Vomiting [None]
  - Feeling abnormal [None]
  - Gait disturbance [None]
  - Balance disorder [None]
  - Constipation [None]
  - Abnormal dreams [None]
  - Blood pressure diastolic increased [None]

NARRATIVE: CASE EVENT DATE: 20150220
